FAERS Safety Report 24020373 (Version 1)
Quarter: 2024Q2

REPORT INFORMATION
  Report Type: Spontaneous
  Country: US (occurrence: US)
  Receive Date: 20240627
  Receipt Date: 20240627
  Transmission Date: 20240716
  Serious: Yes (Hospitalization, Other)
  Sender: FDA-Public Use
  Company Number: US-NOVOPROD-1242655

PATIENT
  Age: 30 Year
  Sex: Male

DRUGS (6)
  1. OZEMPIC [Suspect]
     Active Substance: SEMAGLUTIDE
     Indication: Product used for unknown indication
     Dosage: UNK
     Route: 058
  2. JYNARQUE [Suspect]
     Active Substance: TOLVAPTAN
     Indication: Congenital cystic kidney disease
     Dosage: 60 MG QD(IN THE MORNING)
     Dates: start: 20190712
  3. JYNARQUE [Suspect]
     Active Substance: TOLVAPTAN
     Dosage: UNK
  4. JYNARQUE [Suspect]
     Active Substance: TOLVAPTAN
     Dosage: UNK
  5. JYNARQUE [Suspect]
     Active Substance: TOLVAPTAN
     Dosage: UNK
  6. COLCHICINE [Concomitant]
     Active Substance: COLCHICINE
     Indication: Product used for unknown indication
     Dosage: UNK

REACTIONS (6)
  - Gout [Unknown]
  - Alanine aminotransferase increased [Unknown]
  - Pancreatitis [Recovered/Resolved]
  - Blood glucose increased [Unknown]
  - Glycosylated haemoglobin increased [Unknown]
  - Respiratory tract infection viral [Unknown]

NARRATIVE: CASE EVENT DATE: 20230405
